FAERS Safety Report 8134917-1 (Version None)
Quarter: 2012Q1

REPORT INFORMATION
  Report Type: 
  Country: None (occurrence: None)
  Receive Date: 20120214
  Receipt Date: 20120209
  Transmission Date: 20120608
  Serious: Yes (Other)
  Sender: FDA-Public Use
  Company Number: US-PFIZER INC-2012036452

PATIENT
  Sex: Female

DRUGS (2)
  1. LYRICA [Suspect]
     Indication: FIBROMYALGIA
     Dosage: 100 MG, 3X/DAY
     Route: 048
     Dates: end: 20120201
  2. WELLBUTRIN XL [Concomitant]
     Indication: DEPRESSION
     Dosage: UNK

REACTIONS (5)
  - PRURITUS [None]
  - DEPRESSION [None]
  - NAUSEA [None]
  - ANXIETY [None]
  - INSOMNIA [None]
